FAERS Safety Report 6747014-4 (Version None)
Quarter: 2010Q2

REPORT INFORMATION
  Report Type: 
  Country: None (occurrence: None)
  Receive Date: 20100528
  Receipt Date: 20100518
  Transmission Date: 20101027
  Serious: Yes (Other)
  Sender: FDA-Public Use
  Company Number: PHHY2010US32743

PATIENT
  Sex: Female

DRUGS (8)
  1. ZOMETA [Suspect]
     Dosage: UNK
  2. AROMASIN [Suspect]
     Dosage: 25 MG, DAILY
  3. MIRAPEX [Concomitant]
     Dosage: 0.25 MG, BID
     Route: 048
  4. PRILOSEC [Concomitant]
     Dosage: 20 MG, UNK
  5. VESICARE [Concomitant]
     Dosage: 10 MG, UNK
  6. CELEBREX [Concomitant]
     Dosage: 200 MG, UNK
  7. NIASPAN [Concomitant]
     Dosage: 500 MG, UNK
  8. COUMADIN [Concomitant]

REACTIONS (8)
  - ARTHRALGIA [None]
  - ATRIAL FIBRILLATION [None]
  - BONE PAIN [None]
  - FEELING ABNORMAL [None]
  - GAIT DISTURBANCE [None]
  - MUSCULOSKELETAL STIFFNESS [None]
  - MYALGIA [None]
  - PAIN IN EXTREMITY [None]
